FAERS Safety Report 9065911 (Version 1)
Quarter: 2013Q1

REPORT INFORMATION
  Report Type: Spontaneous
  Country: US (occurrence: US)
  Receive Date: 20130214
  Receipt Date: 20130214
  Transmission Date: 20140127
  Serious: No
  Sender: FDA-Public Use
  Company Number: US-BAYER-2013-018511

PATIENT
  Sex: Male

DRUGS (1)
  1. CIPRO [Suspect]
     Dosage: 500 MG, BID
     Dates: start: 20130128

REACTIONS (2)
  - Renal pain [None]
  - Dysuria [None]
